FAERS Safety Report 8793672 (Version 2)
Quarter: 2015Q2

REPORT INFORMATION
  Report Type: Report from Study
  Country: US (occurrence: US)
  Receive Date: 20120918
  Receipt Date: 20150403
  Transmission Date: 20150821
  Serious: Yes (Death, Hospitalization)
  Sender: FDA-Public Use
  Company Number: US-ROCHE-1128446

PATIENT
  Sex: Male

DRUGS (7)
  1. XELODA [Suspect]
     Active Substance: CAPECITABINE
     Indication: PRODUCT USED FOR UNKNOWN INDICATION
     Route: 065
  2. ARANESP [Concomitant]
     Active Substance: DARBEPOETIN ALFA
  3. TYLENOL [Concomitant]
     Active Substance: ACETAMINOPHEN
  4. TEMSIROLIMUS [Concomitant]
     Active Substance: TEMSIROLIMUS
  5. FLOMAX (UNITED STATES) [Concomitant]
     Route: 048
  6. AVASTIN [Suspect]
     Active Substance: BEVACIZUMAB
     Indication: MALIGNANT URINARY TRACT NEOPLASM
     Route: 042
     Dates: start: 20070223
  7. COMPAZINE [Concomitant]
     Active Substance: PROCHLORPERAZINE MALEATE

REACTIONS (16)
  - Disease progression [Unknown]
  - Dehydration [Unknown]
  - Drug intolerance [Unknown]
  - Death [Fatal]
  - Vomiting [Unknown]
  - Prostatism [Unknown]
  - Oedema peripheral [Unknown]
  - Diarrhoea [Recovered/Resolved]
  - Erythema [Unknown]
  - Nausea [Unknown]
  - Fatigue [Unknown]
  - Pollakiuria [Unknown]
  - Dizziness [Recovered/Resolved]
  - Pain [Unknown]
  - Contusion [Unknown]
  - Off label use [Unknown]
